FAERS Safety Report 14715880 (Version 2)
Quarter: 2018Q2

REPORT INFORMATION
  Report Type: Spontaneous
  Country: JP (occurrence: JP)
  Receive Date: 20180404
  Receipt Date: 20180412
  Transmission Date: 20180711
  Serious: Yes (Death, Hospitalization, Other)
  Sender: FDA-Public Use
  Company Number: JP-ASTRAZENECA-2018SE28634

PATIENT
  Age: 84 Year
  Sex: Female
  Weight: 32 kg

DRUGS (10)
  1. LECICARBON [Concomitant]
     Active Substance: SODIUM BICARBONATE\SODIUM PHOSPHATE, MONOBASIC
     Indication: CONSTIPATION
     Dosage: DOSE UNKNOWN
     Route: 065
     Dates: start: 20180304, end: 20180304
  2. AZUNOL [Concomitant]
     Active Substance: SODIUM GUALENATE
     Indication: SKIN EROSION
     Dosage: DOSE UNKNOWN, SEVERAL TIMES
     Route: 062
     Dates: start: 20180228
  3. TAGRISSO [Suspect]
     Active Substance: OSIMERTINIB
     Indication: NON-SMALL CELL LUNG CANCER
     Route: 048
     Dates: start: 20180222, end: 20180306
  4. IRESSA [Suspect]
     Active Substance: GEFITINIB
     Indication: NON-SMALL CELL LUNG CANCER
     Route: 048
     Dates: start: 20171025, end: 20171120
  5. CARBOCISTEINE [Concomitant]
     Active Substance: CARBOCYSTEINE
     Indication: SPUTUM RETENTION
     Route: 048
     Dates: start: 20180226, end: 20180306
  6. AMBROXOL HYDROCHLORIDE [Concomitant]
     Active Substance: AMBROXOL HYDROCHLORIDE
     Indication: SPUTUM RETENTION
     Route: 048
     Dates: start: 20180226, end: 20180306
  7. SAHNE [Concomitant]
     Indication: XERODERMA
     Dosage: DOSE UNKNOWN, SEVERAL TIMES
     Route: 062
     Dates: start: 20180224
  8. TRANEXAMIC ACID. [Concomitant]
     Active Substance: TRANEXAMIC ACID
     Indication: GENITAL HAEMORRHAGE
     Route: 048
     Dates: start: 20180302, end: 20180305
  9. TAGRISSO [Suspect]
     Active Substance: OSIMERTINIB
     Indication: NON-SMALL CELL LUNG CANCER
     Route: 048
     Dates: start: 20180309, end: 20180312
  10. SENNOSIDE [Concomitant]
     Active Substance: SENNOSIDES
     Indication: CONSTIPATION
     Route: 048
     Dates: start: 20180224, end: 20180302

REACTIONS (6)
  - Hypokalaemia [Recovering/Resolving]
  - Platelet count decreased [Not Recovered/Not Resolved]
  - Electrocardiogram QT prolonged [Recovering/Resolving]
  - Therapy cessation [Unknown]
  - Condition aggravated [Unknown]
  - Malignant neoplasm progression [Unknown]

NARRATIVE: CASE EVENT DATE: 20180226
